FAERS Safety Report 4488146-3 (Version None)
Quarter: 2004Q4

REPORT INFORMATION
  Report Type: 
  Country: None (occurrence: None)
  Receive Date: 20041028
  Receipt Date: 20041019
  Transmission Date: 20050328
  Serious: Yes (Hospitalization)
  Sender: FDA-Public Use
  Company Number: US-JNJFOC-20041006163

PATIENT
  Age: 43 Year
  Sex: Female

DRUGS (3)
  1. TOPAMAX [Suspect]
     Indication: DRUG USE FOR UNKNOWN INDICATION
     Route: 049
  2. PAXIL [Concomitant]
  3. XANAX [Concomitant]

REACTIONS (4)
  - DIALYSIS [None]
  - INTESTINAL INFARCTION [None]
  - MOUTH ULCERATION [None]
  - RHABDOMYOLYSIS [None]
